FAERS Safety Report 5851480-6 (Version None)
Quarter: 2008Q3

REPORT INFORMATION
  Report Type: 
  Country: None (occurrence: None)
  Receive Date: 20080820
  Receipt Date: 20080815
  Transmission Date: 20090109
  Serious: Yes (Death, Hospitalization, Congenital Anomaly, Other)
  Sender: FDA-Public Use
  Company Number: DE-BRISTOL-MYERS SQUIBB COMPANY-14290209

PATIENT
  Weight: 1 kg

DRUGS (5)
  1. SUSTIVA [Suspect]
     Dosage: 1 DF = 1 X 6000
     Route: 064
     Dates: end: 20060925
  2. SAQUINAVIR [Suspect]
     Route: 064
     Dates: start: 20060925, end: 20070201
  3. COMBIVIR [Suspect]
     Route: 064
     Dates: end: 20070201
  4. RITONAVIR [Suspect]
     Route: 064
     Dates: start: 20060925, end: 20070201
  5. VALCYTE [Suspect]
     Route: 064
     Dates: end: 20060925

REACTIONS (12)
  - ANAL ATRESIA [None]
  - ANAL STENOSIS [None]
  - BACTERIAL SEPSIS [None]
  - CONGENITAL ANOMALY [None]
  - CONGENITAL CENTRAL NERVOUS SYSTEM ANOMALY [None]
  - CONGENITAL FOOT MALFORMATION [None]
  - CONGENITAL MUSCULOSKELETAL ANOMALY [None]
  - DEXTROCARDIA [None]
  - PREMATURE BABY [None]
  - SOLITARY KIDNEY [None]
  - SPINE MALFORMATION [None]
  - SYSTEMIC INFLAMMATORY RESPONSE SYNDROME [None]
